FAERS Safety Report 18497492 (Version 1)
Quarter: 2020Q4

REPORT INFORMATION
  Report Type: Spontaneous
  Country: DE (occurrence: DE)
  Receive Date: 20201112
  Receipt Date: 20201112
  Transmission Date: 20210114
  Serious: Yes (Hospitalization)
  Sender: FDA-Public Use
  Company Number: DE-TEVA-2020-DE-1847107

PATIENT
  Age: 79 Year
  Sex: Male

DRUGS (14)
  1. FUROSEMIDE/SPIRONOLACTONE [Suspect]
     Active Substance: FUROSEMIDE\SPIRONOLACTONE
     Dosage: .5 DOSAGE FORMS DAILY; 20|50 MG, 0.5-0-0-0,
     Route: 048
  2. OPIPRAMOL [Concomitant]
     Active Substance: OPIPRAMOL
     Dosage: 150 MILLIGRAM DAILY;  1-1-1-0,
     Route: 048
  3. FOLSAEURE [Concomitant]
     Active Substance: FOLIC ACID
     Dosage: 5 MILLIGRAM DAILY; 0-1-0-0,
     Route: 048
  4. MIRTAZAPIN [Suspect]
     Active Substance: MIRTAZAPINE
     Dosage: 1 DOSAGE FORMS DAILY; 30 MG, 0-0-0.5-0.5,
     Route: 048
  5. TAMSULOSIN [Concomitant]
     Active Substance: TAMSULOSIN
     Dosage: .4 MILLIGRAM DAILY; 1-0-0-0,
     Route: 048
  6. METOPROLOL. [Concomitant]
     Active Substance: METOPROLOL
     Dosage: 23.75 MILLIGRAM DAILY;  1-0-0-0,
     Route: 048
  7. RAMIPRIL. [Suspect]
     Active Substance: RAMIPRIL
     Dosage: .5 DOSAGE FORMS DAILY; 2.5 MG, 0-0-0.5-0,
     Route: 048
  8. LACTULOSE. [Concomitant]
     Active Substance: LACTULOSE
     Dosage: 20 ML DAILY; 1-0-0-0, ZAFT
     Route: 048
  9. PHENPROCOUMON [Concomitant]
     Active Substance: PHENPROCOUMON
     Dosage: 3MG, BY VALUE,
     Route: 048
  10. CINNARIZINE//DIMENHYDRINAT [Suspect]
     Active Substance: CINNARIZINE\DIMENHYDRINATE
     Dosage: 3 DOSAGE FORMS DAILY; 20|40 MG, 1-1-1-0,
     Route: 048
  11. QUETIAPIN [Suspect]
     Active Substance: QUETIAPINE
     Dosage: 25 MILLIGRAM DAILY; 0-0-0-1,
     Route: 048
  12. COLECALCIFEROL [Concomitant]
     Active Substance: CHOLECALCIFEROL
     Dosage: 1 DOSAGE FORMS DAILY; 1000 IE, 0-1-0-0,
     Route: 048
  13. TORASEMID [Suspect]
     Active Substance: TORSEMIDE
     Dosage: 10 MILLIGRAM DAILY;  1-0-0-0,
     Route: 048
  14. OPIPRAMOL [Concomitant]
     Active Substance: OPIPRAMOL
     Dosage: 50 MG, 1-1-1-0, TABLETTEN
     Route: 048

REACTIONS (6)
  - Chills [Unknown]
  - Hypotension [Unknown]
  - Loss of consciousness [Unknown]
  - Condition aggravated [Unknown]
  - Dehydration [Unknown]
  - Depressed level of consciousness [Unknown]
